FAERS Safety Report 4693196-8 (Version None)
Quarter: 2005Q2

REPORT INFORMATION
  Report Type: 
  Country: None (occurrence: None)
  Receive Date: 20050617
  Receipt Date: 20050607
  Transmission Date: 20051028
  Serious: Yes (Hospitalization)
  Sender: FDA-Public Use
  Company Number: US-JNJFOC-20050603136

PATIENT
  Sex: Male

DRUGS (3)
  1. TYLENOL (CAPLET) [Suspect]
     Indication: PAIN
  2. TYLENOL (CAPLET) [Suspect]
     Indication: HEADACHE
  3. PHENOBARBITAL [Concomitant]

REACTIONS (2)
  - HAEMATEMESIS [None]
  - HAEMORRHAGE [None]
